FAERS Safety Report 17509952 (Version 3)
Quarter: 2022Q3

REPORT INFORMATION
  Report Type: Report from Study
  Country: US (occurrence: US)
  Receive Date: 20200306
  Receipt Date: 20220912
  Transmission Date: 20221027
  Serious: Yes (Other)
  Sender: FDA-Public Use
  Company Number: US-TAKEDA-2020TUS012645

PATIENT
  Age: 33 Year
  Sex: Female
  Weight: 100.7 kg

DRUGS (9)
  1. VEDOLIZUMAB [Suspect]
     Active Substance: VEDOLIZUMAB
     Indication: Colitis ulcerative
     Dosage: 300 MILLIGRAM
     Route: 042
     Dates: start: 20180515, end: 20190315
  2. MERCAPTOPURINE [Concomitant]
     Active Substance: MERCAPTOPURINE
     Indication: Colitis ulcerative
     Dosage: UNK UNK, QD
     Dates: start: 20180828, end: 20181002
  3. BACLOFEN [Concomitant]
     Active Substance: BACLOFEN
     Indication: Muscle disorder
     Dosage: UNK
     Dates: start: 20180829, end: 20181002
  4. BENADRYL                           /00000402/ [Concomitant]
     Indication: Hypersensitivity
     Dosage: UNK
     Route: 048
     Dates: start: 20180829, end: 20181020
  5. CALMOSEPTINE                       /00156514/ [Concomitant]
     Indication: Hidradenitis
     Dosage: UNK
     Route: 061
     Dates: start: 20180829, end: 20190527
  6. TYLENOL                            /00020001/ [Concomitant]
     Indication: Pain
     Dosage: UNK
     Route: 048
     Dates: start: 20180829, end: 20190215
  7. GABAPENTIN [Concomitant]
     Active Substance: GABAPENTIN
     Indication: Muscular weakness
     Dosage: UNK UNK, QD
     Dates: start: 20180829, end: 20181002
  8. CAFFEINE [Concomitant]
     Active Substance: CAFFEINE
     Dosage: UNK, MONTHLY
     Route: 048
     Dates: start: 20180829, end: 20181230
  9. CAFFEINE [Concomitant]
     Active Substance: CAFFEINE
     Dosage: UNK, 1/WEEK
     Dates: start: 20190102, end: 20190527

REACTIONS (2)
  - Abscess limb [Unknown]
  - Pregnancy [Recovered/Resolved]

NARRATIVE: CASE EVENT DATE: 20180829
